FAERS Safety Report 8015504-2 (Version None)
Quarter: 2011Q4

REPORT INFORMATION
  Report Type: 
  Country: None (occurrence: None)
  Receive Date: 20111223
  Receipt Date: 20111220
  Transmission Date: 20120403
  Serious: Yes (Hospitalization)
  Sender: FDA-Public Use
  Company Number: 2011ST000543

PATIENT
  Age: 19 Year
  Sex: Female

DRUGS (12)
  1. DOXORUBICIN HCL [Suspect]
     Indication: HODGKIN'S DISEASE
     Dosage: 25 MG/M**2;IV
     Route: 042
     Dates: start: 20110729
  2. DOXORUBICIN HCL [Suspect]
     Indication: HODGKIN'S DISEASE
     Dosage: 25 MG/M**2;IV
     Route: 042
     Dates: start: 20110705
  3. CYCLOPHOSPHAMIDE [Suspect]
     Indication: HODGKIN'S DISEASE
     Dosage: 650 MG/M**2;IV
     Route: 042
     Dates: start: 20110705
  4. MATULANE [Suspect]
     Indication: HODGKIN'S DISEASE
     Dosage: 100 MG/M**2;PO
     Route: 048
     Dates: start: 20110705
  5. MATULANE [Suspect]
     Indication: HODGKIN'S DISEASE
     Dosage: 100 MG/M**2;PO
     Route: 048
     Dates: start: 20110729
  6. RITUXIMAB (RITUXIMAB) [Suspect]
     Indication: HODGKIN'S DISEASE
     Dosage: 375 MG/M**2;IV
     Route: 042
     Dates: start: 20110705
  7. RITUXIMAB (RITUXIMAB) [Suspect]
     Indication: HODGKIN'S DISEASE
     Dosage: 375 MG/M**2;IV
     Route: 042
     Dates: start: 20110729
  8. PREDNISONE TAB [Suspect]
     Indication: HODGKIN'S DISEASE
     Dosage: 40 MG/M**2;PO
     Route: 048
     Dates: start: 20110705
  9. PREDNISONE TAB [Suspect]
     Indication: HODGKIN'S DISEASE
     Dosage: 40 MG/M**2;PO
     Route: 048
     Dates: start: 20110729
  10. BLEOMYCIN SULFATE [Suspect]
     Indication: HODGKIN'S DISEASE
     Dosage: 10 MG/M**2;IV
     Route: 042
     Dates: start: 20110101, end: 20110805
  11. ETOPOSIDE [Suspect]
     Indication: HODGKIN'S DISEASE
     Dosage: 100 MG/M**2;IV 100 UG/M**2;IV
     Route: 042
     Dates: start: 20110729
  12. ETOPOSIDE [Suspect]
     Indication: HODGKIN'S DISEASE
     Dosage: 100 MG/M**2;IV 100 UG/M**2;IV
     Route: 042
     Dates: start: 20110705

REACTIONS (7)
  - LEUKOPENIA [None]
  - UROSEPSIS [None]
  - CHILLS [None]
  - PYREXIA [None]
  - IRON DEFICIENCY ANAEMIA [None]
  - ESCHERICHIA TEST POSITIVE [None]
  - PRESYNCOPE [None]
